FAERS Safety Report 19423908 (Version 1)
Quarter: 2021Q2

REPORT INFORMATION
  Report Type: Spontaneous
  Country: CA (occurrence: CA)
  Receive Date: 20210616
  Receipt Date: 20210616
  Transmission Date: 20210717
  Serious: Yes (Disabling)
  Sender: FDA-Public Use
  Company Number: CA-OTSUKA-2021_020087

PATIENT
  Age: 36 Year
  Sex: Male
  Weight: 100.23 kg

DRUGS (1)
  1. ABILIFY [Suspect]
     Active Substance: ARIPIPRAZOLE
     Indication: HOSPITALISATION
     Dosage: UNK
     Route: 065

REACTIONS (2)
  - Musculoskeletal pain [Recovered/Resolved]
  - Product use in unapproved indication [Unknown]
